FAERS Safety Report 5601129-2 (Version None)
Quarter: 2008Q1

REPORT INFORMATION
  Report Type: 
  Country: None (occurrence: None)
  Receive Date: 20080122
  Receipt Date: 20080122
  Transmission Date: 20080703
  Serious: No
  Sender: FDA-Public Use
  Company Number: None

PATIENT
  Sex: Male
  Weight: 86.1834 kg

DRUGS (1)
  1. CHANTIX [Suspect]
     Indication: SMOKING CESSATION THERAPY
     Dosage: 1MG. 2X/DAY PO
     Route: 048
     Dates: start: 20070825, end: 20070924

REACTIONS (5)
  - ABDOMINAL PAIN LOWER [None]
  - AGGRESSION [None]
  - ANGER [None]
  - ARTHRALGIA [None]
  - NIGHTMARE [None]
